FAERS Safety Report 7501786-X (Version None)
Quarter: 2011Q2

REPORT INFORMATION
  Report Type: 
  Country: None (occurrence: None)
  Receive Date: 20110523
  Receipt Date: 20110523
  Transmission Date: 20111010
  Serious: Yes (Life-Threatening, Hospitalization)
  Sender: FDA-Public Use
  Company Number: None

PATIENT
  Age: 52 Year
  Sex: Female
  Weight: 56.246 kg

DRUGS (2)
  1. CYMBALTA [Suspect]
     Indication: ABDOMINAL PAIN
     Dosage: 30 MG 1 PILL
     Dates: start: 20110509, end: 20110509
  2. CYMBALTA [Suspect]
     Indication: BACK PAIN
     Dosage: 30 MG 1 PILL
     Dates: start: 20110509, end: 20110509

REACTIONS (5)
  - SPEECH DISORDER [None]
  - HEADACHE [None]
  - LOSS OF CONSCIOUSNESS [None]
  - HYPOAESTHESIA [None]
  - HEART RATE INCREASED [None]
